FAERS Safety Report 14264343 (Version 6)
Quarter: 2019Q3

REPORT INFORMATION
  Report Type: Report from Study
  Country: US (occurrence: US)
  Receive Date: 20171208
  Receipt Date: 20190910
  Transmission Date: 20191004
  Serious: Yes (Other)
  Sender: FDA-Public Use
  Company Number: US-JAZZ-2017-US-014352

PATIENT
  Age: 53 Year
  Sex: Female

DRUGS (21)
  1. AVALIDE [Concomitant]
     Active Substance: HYDROCHLOROTHIAZIDE\IRBESARTAN
  2. DEPAKOTE [Concomitant]
     Active Substance: DIVALPROEX SODIUM
  3. DYMISTA [Concomitant]
     Active Substance: AZELASTINE HYDROCHLORIDE\FLUTICASONE PROPIONATE
  4. XYREM [Suspect]
     Active Substance: SODIUM OXYBATE
     Dosage: 3.75 G, BID
     Route: 048
     Dates: start: 201605
  5. METOPROLOL SUCCINATE. [Concomitant]
     Active Substance: METOPROLOL SUCCINATE
  6. AMITIZA [Concomitant]
     Active Substance: LUBIPROSTONE
  7. PREMARIN [Concomitant]
     Active Substance: ESTROGENS, CONJUGATED
  8. XYREM [Suspect]
     Active Substance: SODIUM OXYBATE
     Dosage: DOSE ADJUSTMENT
     Route: 048
     Dates: start: 2013, end: 2016
  9. CONTRAVE [Suspect]
     Active Substance: BUPROPION HYDROCHLORIDE\NALTREXONE HYDROCHLORIDE
     Dosage: DOSE INCREASED
  10. LEVAQUIN [Concomitant]
     Active Substance: LEVOFLOXACIN
  11. CYMBALTA [Concomitant]
     Active Substance: DULOXETINE HYDROCHLORIDE
  12. LAMICTAL [Concomitant]
     Active Substance: LAMOTRIGINE
  13. SINGULAIR [Concomitant]
     Active Substance: MONTELUKAST SODIUM
  14. CONTRAVE [Suspect]
     Active Substance: BUPROPION HYDROCHLORIDE\NALTREXONE HYDROCHLORIDE
     Indication: WEIGHT INCREASED
     Dosage: UNK
  15. NASONEX [Concomitant]
     Active Substance: MOMETASONE FUROATE
  16. ABILIFY [Concomitant]
     Active Substance: ARIPIPRAZOLE
  17. XOPENEX HFA [Concomitant]
     Active Substance: LEVALBUTEROL TARTRATE
  18. XYREM [Suspect]
     Active Substance: SODIUM OXYBATE
     Indication: NARCOLEPSY
     Dosage: 2.25 G, BID
     Route: 048
     Dates: start: 201309, end: 201309
  19. ADDERALL [Concomitant]
     Active Substance: AMPHETAMINE ASPARTATE\AMPHETAMINE SULFATE\DEXTROAMPHETAMINE SACCHARATE\DEXTROAMPHETAMINE SULFATE
  20. DIFLUCAN [Concomitant]
     Active Substance: FLUCONAZOLE
  21. TRAZODONE [Concomitant]
     Active Substance: TRAZODONE HYDROCHLORIDE

REACTIONS (6)
  - Sleep apnoea syndrome [Unknown]
  - Weight increased [Recovered/Resolved]
  - Neuropathy peripheral [Unknown]
  - Glucose tolerance impaired [Recovered/Resolved]
  - Hunger [Not Recovered/Not Resolved]
  - Poor quality sleep [Unknown]

NARRATIVE: CASE EVENT DATE: 2013
